FAERS Safety Report 10186443 (Version 1)
Quarter: 2014Q2

REPORT INFORMATION
  Report Type: Spontaneous
  Country: US (occurrence: US)
  Receive Date: 20140521
  Receipt Date: 20140521
  Transmission Date: 20141212
  Serious: No
  Sender: FDA-Public Use
  Company Number: US-ASTRAZENECA-2013SE75990

PATIENT
  Age: 53 Year
  Sex: Male
  Weight: 95.3 kg

DRUGS (2)
  1. PULMICORT FLEXHALER [Suspect]
     Indication: RESPIRATORY TRACT IRRITATION
     Dosage: 180 MCG, 2 PUFFS BID
     Route: 055
     Dates: start: 20131012
  2. PULMICORT FLEXHALER [Suspect]
     Indication: ASTHMA
     Dosage: 180 MCG, 2 PUFFS BID
     Route: 055
     Dates: start: 20131012

REACTIONS (2)
  - Epistaxis [Unknown]
  - Off label use [Unknown]
